FAERS Safety Report 21700657 (Version 2)
Quarter: 2022Q4

REPORT INFORMATION
  Report Type: Spontaneous
  Country: US (occurrence: US)
  Receive Date: 20221208
  Receipt Date: 20221219
  Transmission Date: 20230112
  Serious: Yes (Other)
  Sender: FDA-Public Use
  Company Number: US-TEVA-2022-US-2832617

PATIENT
  Age: 54 Year
  Sex: Male

DRUGS (5)
  1. LENALIDOMIDE [Suspect]
     Active Substance: LENALIDOMIDE
     Indication: Plasma cell myeloma
     Dosage: 25 MG
     Route: 065
  2. DEXAMETHASONE [Suspect]
     Active Substance: DEXAMETHASONE
     Indication: Plasma cell myeloma
     Route: 065
  3. CLOBETASOL [Concomitant]
     Active Substance: CLOBETASOL
     Indication: Rash
     Dosage: SPRAY , CLOBETASOL: 0.05 %
     Route: 065
  4. ALCLOMETASONE [Concomitant]
     Active Substance: ALCLOMETASONE
     Indication: Rash
     Dosage: ALCLOMETASONE: 0.05 %
     Route: 061
  5. PREGABALIN [Concomitant]
     Active Substance: PREGABALIN
     Indication: Rash
     Dosage: 100 MILLIGRAM DAILY;
     Route: 065

REACTIONS (2)
  - Drug ineffective [Unknown]
  - Drug eruption [Recovered/Resolved]
